FAERS Safety Report 23267001 (Version 3)
Quarter: 2024Q1

REPORT INFORMATION
  Report Type: Spontaneous
  Country: None (occurrence: PT)
  Receive Date: 20231206
  Receipt Date: 20240202
  Transmission Date: 20240409
  Serious: Yes (Other)
  Sender: FDA-Public Use
  Company Number: PT-Harrow Eye-2149024

PATIENT
  Age: 63 Year
  Sex: Female

DRUGS (3)
  1. VERKAZIA [Suspect]
     Active Substance: CYCLOSPORINE
     Indication: Dry eye
     Route: 047
     Dates: start: 20231115, end: 20231120
  2. I Fresh- POLYVINYL ALCOHOL [Concomitant]
     Dates: start: 20231117
  3. Vitamin A- Retinol [Concomitant]
     Dates: start: 20231117

REACTIONS (7)
  - Eye ulcer [Unknown]
  - Abnormal sensation in eye [Recovered/Resolved]
  - Swelling of eyelid [Recovered/Resolved]
  - Lacrimation increased [Recovered/Resolved]
  - Eye irritation [Recovered/Resolved]
  - Prescribed overdose [Unknown]
  - Off label use [Unknown]
